FAERS Safety Report 4659958-8 (Version None)
Quarter: 2005Q2

REPORT INFORMATION
  Report Type: 
  Country: None (occurrence: None)
  Receive Date: 20050502
  Receipt Date: 20050321
  Transmission Date: 20051028
  Serious: Yes (Hospitalization)
  Sender: FDA-Public Use
  Company Number: USA050393949

PATIENT
  Age: 63 Year
  Sex: Female

DRUGS (5)
  1. SYMBYAX-OLANAZAPINE 6MG/ FLUOXETINE 25MG (OLANZAPIN [Suspect]
     Indication: BIPOLAR DISORDER
  2. ZYPREXA [Suspect]
  3. ABILIFY [Concomitant]
  4. PROVIGIL [Concomitant]
  5. PREMARIN [Concomitant]

REACTIONS (1)
  - GENERALISED OEDEMA [None]
